FAERS Safety Report 9894867 (Version 12)
Quarter: 2014Q3

REPORT INFORMATION
  Report Type: Spontaneous
  Country: IL (occurrence: IL)
  Receive Date: 20140213
  Receipt Date: 20140812
  Transmission Date: 20150326
  Serious: Yes (Death, Hospitalization, Other)
  Sender: FDA-Public Use
  Company Number: IL-PFIZER INC-2014031504

PATIENT
  Age: 74 Year
  Sex: Male

DRUGS (5)
  1. SUTENT [Suspect]
     Active Substance: SUNITINIB MALATE
     Dosage: 25 MG, 1X/DAY CONSECUTIVELY
     Route: 048
     Dates: start: 20140212
  2. SUTENT [Suspect]
     Active Substance: SUNITINIB MALATE
     Indication: PANCREATIC NEUROENDOCRINE TUMOUR
     Dosage: 37.5 MG, 1X/DAY
     Route: 048
     Dates: start: 20131124
  3. CADEX [Concomitant]
  4. SUTENT [Suspect]
     Active Substance: SUNITINIB MALATE
     Dosage: 37.5 MG, FOR OVER A WEEK
  5. AMLO [Concomitant]
     Dosage: UNK
     Dates: end: 20140130

REACTIONS (23)
  - Hypertension [Recovered/Resolved]
  - Pain in extremity [Recovered/Resolved]
  - Blood creatinine decreased [Not Recovered/Not Resolved]
  - White blood cell count decreased [Unknown]
  - Dry skin [Not Recovered/Not Resolved]
  - Abdominal pain [Unknown]
  - Dysphagia [Unknown]
  - Death [Fatal]
  - Malaise [Recovering/Resolving]
  - Decreased appetite [Not Recovered/Not Resolved]
  - Constipation [Recovered/Resolved]
  - Haemoglobin decreased [Recovering/Resolving]
  - Dyspnoea [Recovering/Resolving]
  - Pneumonia [Unknown]
  - Pyrexia [Recovered/Resolved]
  - Skin discolouration [Recovering/Resolving]
  - Oedema peripheral [Not Recovered/Not Resolved]
  - Epistaxis [Recovered/Resolved]
  - Asthenia [Not Recovered/Not Resolved]
  - Blister [Recovered/Resolved]
  - Blood albumin decreased [Recovering/Resolving]
  - Nausea [Not Recovered/Not Resolved]
  - Skin discolouration [Not Recovered/Not Resolved]

NARRATIVE: CASE EVENT DATE: 201401
